FAERS Safety Report 8850592 (Version 2)
Quarter: 2013Q1

REPORT INFORMATION
  Report Type: Report from Study
  Country: PL (occurrence: PL)
  Receive Date: 20121019
  Receipt Date: 20130118
  Transmission Date: 20140127
  Serious: Yes (Other)
  Sender: FDA-Public Use
  Company Number: PL-BRISTOL-MYERS SQUIBB COMPANY-17029695

PATIENT
  Age: 26 Year
  Sex: Female

DRUGS (3)
  1. ENTECAVIR [Suspect]
     Indication: CHRONIC HEPATITIS B
     Route: 048
     Dates: start: 20101013, end: 20120815
  2. TENOFOVIR [Suspect]
     Indication: CHRONIC HEPATITIS B
     Route: 048
     Dates: start: 20101013, end: 20120815
  3. MIDODRINE HCL [Concomitant]
     Dates: start: 20111015

REACTIONS (1)
  - Neutrophil count decreased [Recovered/Resolved]
